FAERS Safety Report 10853417 (Version 1)
Quarter: 2015Q1

REPORT INFORMATION
  Report Type: Spontaneous
  Country: US (occurrence: US)
  Receive Date: 20150223
  Receipt Date: 20150223
  Transmission Date: 20150721
  Serious: No
  Sender: FDA-Public Use
  Company Number: US-BIOGENIDEC-2015BI011654

PATIENT
  Age: 57 Year
  Sex: Female

DRUGS (1)
  1. TECFIDERA [Suspect]
     Active Substance: DIMETHYL FUMARATE
     Indication: MULTIPLE SCLEROSIS
     Dates: start: 20140722

REACTIONS (3)
  - Hypoaesthesia [Not Recovered/Not Resolved]
  - Paraesthesia [Not Recovered/Not Resolved]
  - Sensory disturbance [Not Recovered/Not Resolved]

NARRATIVE: CASE EVENT DATE: 20141121
